FAERS Safety Report 10601493 (Version 1)
Quarter: 2014Q4

REPORT INFORMATION
  Report Type: Spontaneous
  Country: US (occurrence: None)
  Receive Date: 20141121
  Receipt Date: 20141121
  Transmission Date: 20150529
  Serious: Yes (Disabling)
  Sender: FDA-Public Use
  Company Number: None

PATIENT
  Age: 58 Year
  Sex: Male
  Weight: 83.46 kg

DRUGS (1)
  1. ESKALITH [Suspect]
     Active Substance: LITHIUM CARBONATE
     Indication: BIPOLAR DISORDER
     Dosage: 900, TWICE DAILY

REACTIONS (2)
  - Weight decreased [None]
  - Contusion [None]

NARRATIVE: CASE EVENT DATE: 20141120
